FAERS Safety Report 7553548-5 (Version None)
Quarter: 2011Q2

REPORT INFORMATION
  Report Type: 
  Country: None (occurrence: None)
  Receive Date: 20110617
  Receipt Date: 20110107
  Transmission Date: 20111010
  Serious: Yes (Other)
  Sender: FDA-Public Use
  Company Number: US-BAYER-201032146NA

PATIENT
  Age: 24 Year
  Sex: Female
  Weight: 86.621 kg

DRUGS (9)
  1. LEVAQUIN [Concomitant]
     Dosage: 750 MG, UNK
  2. AZITHROMYCIN [Concomitant]
     Dosage: UNK
     Dates: start: 20100406
  3. WARFARIN SODIUM [Concomitant]
     Dosage: 5 MG, UNK
  4. YASMIN [Suspect]
     Indication: ORAL CONTRACEPTION
     Dosage: UNK UNK, QD
     Route: 048
     Dates: start: 20091001
  5. YAZ [Suspect]
     Indication: ORAL CONTRACEPTION
     Dosage: UNK UNK, QD
     Dates: start: 20090701
  6. NICODERM [Concomitant]
  7. ZOLOFT [Concomitant]
  8. IBUPROFEN [Concomitant]
     Indication: UPPER RESPIRATORY TRACT INFECTION
  9. PERCOCET [Concomitant]
     Indication: UPPER RESPIRATORY TRACT INFECTION

REACTIONS (3)
  - PULMONARY EMBOLISM [None]
  - DEPRESSION [None]
  - LUNG DISORDER [None]
